FAERS Safety Report 9040265 (Version 1)
Quarter: 2013Q1

REPORT INFORMATION
  Report Type: Report from Study
  Country: US (occurrence: US)
  Receive Date: 20130129
  Receipt Date: 20130129
  Transmission Date: 20140127
  Serious: No
  Sender: FDA-Public Use
  Company Number: US-ABBOTT-12P-163-0890968-00

PATIENT
  Age: 46 Year
  Sex: Male

DRUGS (4)
  1. HUMIRA 40 MG/0.8 ML PEN [Suspect]
     Indication: PSORIATIC ARTHROPATHY
     Dates: start: 20111108
  2. OMEPRAZOLE [Concomitant]
     Indication: GASTRIC DISORDER
  3. LEVOTHYROXINE [Concomitant]
     Indication: HYPOTHYROIDISM
  4. CYCLOBENZAPRINE [Concomitant]
     Indication: PAIN
     Dosage: DAILY AT BEDTIME

REACTIONS (7)
  - Tremor [Not Recovered/Not Resolved]
  - Tremor [Unknown]
  - Asthenia [Unknown]
  - Contusion [Unknown]
  - Chromaturia [Unknown]
  - Diarrhoea [Recovered/Resolved]
  - Pain [Unknown]
